FAERS Safety Report 11698833 (Version 2)
Quarter: 2015Q4

REPORT INFORMATION
  Report Type: Spontaneous
  Country: US (occurrence: US)
  Receive Date: 20151104
  Receipt Date: 20151116
  Transmission Date: 20160304
  Serious: No
  Sender: FDA-Public Use
  Company Number: US-ACTELION PHARMACEUTICALS US, INC.-A-NJ2014-97756

PATIENT
  Age: 34 Year
  Sex: Female

DRUGS (5)
  1. TRACLEER [Suspect]
     Active Substance: BOSENTAN
     Indication: PULMONARY ARTERIAL HYPERTENSION
     Dosage: UNK, PER MIN
     Route: 048
  2. REMODULIN [Suspect]
     Active Substance: TREPROSTINIL
     Indication: PRODUCT USED FOR UNKNOWN INDICATION
     Dosage: 47 NG/KG, PER MIN
     Route: 058
  3. COUMADIN [Concomitant]
     Active Substance: WARFARIN SODIUM
  4. ADCIRCA [Concomitant]
     Active Substance: TADALAFIL
  5. SILDENAFIL. [Concomitant]
     Active Substance: SILDENAFIL

REACTIONS (17)
  - Device connection issue [Unknown]
  - Feeling hot [Unknown]
  - Productive cough [Unknown]
  - Head discomfort [Unknown]
  - Paraesthesia oral [Unknown]
  - Presyncope [Unknown]
  - Flushing [Unknown]
  - Dyspnoea [Unknown]
  - Dizziness [Unknown]
  - Infusion site pain [Unknown]
  - Chest pain [Unknown]
  - Infusion site rash [Unknown]
  - Drug dose omission [Unknown]
  - Headache [Unknown]
  - Fatigue [Unknown]
  - Infusion site irritation [Unknown]
  - Blood pressure increased [Unknown]

NARRATIVE: CASE EVENT DATE: 20141223
